FAERS Safety Report 24214573 (Version 2)
Quarter: 2024Q3

REPORT INFORMATION
  Report Type: Spontaneous
  Country: US (occurrence: US)
  Receive Date: 20240815
  Receipt Date: 20240830
  Transmission Date: 20241017
  Serious: Yes (Hospitalization)
  Sender: TEVA
  Company Number: US-TEVA-VS-3230635

PATIENT
  Age: 65 Year
  Sex: Male

DRUGS (4)
  1. LENALIDOMIDE [Suspect]
     Active Substance: LENALIDOMIDE
     Indication: Plasma cell myeloma
     Route: 065
  2. ITRACONAZOLE [Suspect]
     Active Substance: ITRACONAZOLE
     Indication: Gastrointestinal disorder
     Route: 048
  3. DARATUMUMAB [Suspect]
     Active Substance: DARATUMUMAB
     Indication: Plasma cell myeloma
     Route: 065
  4. AMPHOTERICIN B [Concomitant]
     Active Substance: AMPHOTERICIN B
     Indication: Histoplasmosis
     Route: 065

REACTIONS (8)
  - Gastrointestinal disorder [Recovering/Resolving]
  - Generalised oedema [Unknown]
  - Drug ineffective [Unknown]
  - Histoplasmosis [Recovering/Resolving]
  - Intestinal obstruction [Recovering/Resolving]
  - Hyponatraemia [Unknown]
  - Ascites [Unknown]
  - Acute kidney injury [Unknown]
